FAERS Safety Report 16851757 (Version 4)
Quarter: 2020Q4

REPORT INFORMATION
  Report Type: Spontaneous
  Country: CH (occurrence: CH)
  Receive Date: 20190925
  Receipt Date: 20201215
  Transmission Date: 20210113
  Serious: Yes (Other)
  Sender: FDA-Public Use
  Company Number: CH-ASTRAZENECA-2019SF35350

PATIENT
  Age: 17432 Day
  Sex: Female

DRUGS (24)
  1. DAFALGAN [Suspect]
     Active Substance: ACETAMINOPHEN
     Dosage: 1.0G AS REQUIRED
     Route: 048
     Dates: start: 20190828, end: 20190902
  2. NEXIUM [Suspect]
     Active Substance: ESOMEPRAZOLE MAGNESIUM
     Route: 048
     Dates: start: 20190820, end: 201909
  3. IRFEN [Suspect]
     Active Substance: IBUPROFEN
     Route: 048
     Dates: start: 20190825, end: 20190902
  4. LASIX [Concomitant]
     Active Substance: FUROSEMIDE
     Dates: start: 20190820, end: 20190821
  5. MOVICOL [Concomitant]
     Active Substance: POLYETHYLENE GLYCOL 3350\POTASSIUM CHLORIDE\SODIUM BICARBONATE\SODIUM CHLORIDE
     Dates: start: 20190820
  6. PLAQUENIL [Concomitant]
     Active Substance: HYDROXYCHLOROQUINE SULFATE
     Dates: start: 2007, end: 2019
  7. ASPIRIN CARDIO [Concomitant]
     Active Substance: ASPIRIN
     Dates: start: 2007, end: 2019
  8. TEMESTA (LORAZEPAM) [Suspect]
     Active Substance: LORAZEPAM
     Dosage: 1.0MG AS REQUIRED
     Route: 065
     Dates: start: 20190827, end: 20190902
  9. CLEXANE [Suspect]
     Active Substance: ENOXAPARIN SODIUM
     Route: 065
     Dates: start: 20190823, end: 20190825
  10. CLEXANE [Suspect]
     Active Substance: ENOXAPARIN SODIUM
     Route: 065
     Dates: start: 20190827, end: 201909
  11. PERINDOPRIL [Concomitant]
     Active Substance: PERINDOPRIL
     Dates: end: 20190818
  12. SEVREDOL [Concomitant]
     Active Substance: MORPHINE
     Dates: start: 20190820, end: 20190820
  13. HEPARIN [Suspect]
     Active Substance: HEPARIN SODIUM
     Dosage: AS NECESSARY
     Route: 042
     Dates: start: 20190818, end: 20190824
  14. WARFARINE [Suspect]
     Active Substance: WARFARIN
     Route: 048
     Dates: start: 201907, end: 20190818
  15. HEPARIN [Suspect]
     Active Substance: HEPARIN SODIUM
     Dosage: AS NECESSARY
     Route: 042
     Dates: start: 20190826, end: 20190827
  16. WARFARINE [Suspect]
     Active Substance: WARFARIN
     Route: 048
     Dates: start: 20190828, end: 20190902
  17. FERRUM [Concomitant]
     Active Substance: FERROUS FUMARATE
     Dates: start: 20190820
  18. SUPRADYN [Concomitant]
     Active Substance: ASCORBIC ACID\MINERALS\VITAMINS
     Dosage: NOT TAKEN
     Dates: end: 20190902
  19. WARFARINE [Suspect]
     Active Substance: WARFARIN
     Route: 048
     Dates: start: 20190902
  20. FUROSEMIDE. [Concomitant]
     Active Substance: FUROSEMIDE
     Dates: end: 20190818
  21. PREDNISONE. [Concomitant]
     Active Substance: PREDNISONE
     Dates: start: 20190827, end: 20190829
  22. DAFALGAN [Suspect]
     Active Substance: ACETAMINOPHEN
     Route: 048
     Dates: start: 20190820, end: 20190828
  23. LASIX [Concomitant]
     Active Substance: FUROSEMIDE
  24. TRAMAL [Concomitant]
     Active Substance: TRAMADOL
     Dosage: NOT TAKEN ; AS NECESSARY
     Dates: end: 20190902

REACTIONS (2)
  - Mixed liver injury [Recovered/Resolved]
  - Atrioventricular block complete [Unknown]

NARRATIVE: CASE EVENT DATE: 20190902
